FAERS Safety Report 17911348 (Version 1)
Quarter: 2020Q2

REPORT INFORMATION
  Report Type: Spontaneous
  Country: US (occurrence: US)
  Receive Date: 20200617
  Receipt Date: 20200617
  Transmission Date: 20200714
  Serious: Yes (Other)
  Sender: FDA-Public Use
  Company Number: None

PATIENT
  Age: 33 Year
  Sex: Female
  Weight: 63.9 kg

DRUGS (1)
  1. NP THYROID [Suspect]
     Active Substance: LEVOTHYROXINE\LIOTHYRONINE
     Route: 048
     Dates: start: 20190601, end: 20200501

REACTIONS (4)
  - Foetal exposure during pregnancy [None]
  - Maternal exposure during pregnancy [None]
  - Recalled product administered [None]
  - Abortion spontaneous [None]

NARRATIVE: CASE EVENT DATE: 20200506
